FAERS Safety Report 14113558 (Version 1)
Quarter: 2017Q4

REPORT INFORMATION
  Report Type: Spontaneous
  Country: US (occurrence: US)
  Receive Date: 20171023
  Receipt Date: 20171023
  Transmission Date: 20180321
  Serious: No
  Sender: FDA-Public Use
  Company Number: US-GLENMARK PHARMACEUTICALS-2017GMK028315

PATIENT

DRUGS (1)
  1. ETHINYL ESTRADIOL/NORETHINDRONE [Suspect]
     Active Substance: ETHINYL ESTRADIOL\NORETHINDRONE
     Indication: HORMONE LEVEL ABNORMAL
     Dosage: 1 DF, QD
     Route: 048

REACTIONS (3)
  - Feeling hot [Not Recovered/Not Resolved]
  - Breast disorder [Not Recovered/Not Resolved]
  - Product use in unapproved indication [Unknown]
